FAERS Safety Report 4381444-3 (Version None)
Quarter: 2004Q2

REPORT INFORMATION
  Report Type: 
  Country: None (occurrence: None)
  Receive Date: 20040616
  Receipt Date: 20040603
  Transmission Date: 20050107
  Serious: Yes (Other)
  Sender: FDA-Public Use
  Company Number: S04-USA-03133-01

PATIENT

DRUGS (1)
  1. LEXAPRO [Suspect]

REACTIONS (3)
  - AMNESIA [None]
  - HEPATOTOXICITY [None]
  - RESTLESS LEGS SYNDROME [None]
